FAERS Safety Report 4483750-0 (Version None)
Quarter: 2004Q4

REPORT INFORMATION
  Report Type: 
  Country: None (occurrence: None)
  Receive Date: 20041022
  Receipt Date: 20041022
  Transmission Date: 20050328
  Serious: Yes (Other)
  Sender: FDA-Public Use
  Company Number: None

PATIENT
  Sex: Female
  Weight: 56 kg

DRUGS (1)
  1. ARANESP [Suspect]
     Indication: ANAEMIA
     Dosage: 200 MCG IV ONCE WEEKLY (ONE DOSE ONLY)
     Route: 042
     Dates: start: 20040927

REACTIONS (1)
  - RASH PRURITIC [None]
